FAERS Safety Report 13259076 (Version 3)
Quarter: 2017Q1

REPORT INFORMATION
  Report Type: Report from Study
  Country: US (occurrence: US)
  Receive Date: 20170222
  Receipt Date: 20170330
  Transmission Date: 20170428
  Serious: No
  Sender: FDA-Public Use
  Company Number: US-ROCHE-1897339

PATIENT
  Sex: Female

DRUGS (3)
  1. CARBOPLATIN. [Concomitant]
     Active Substance: CARBOPLATIN
  2. AVASTIN [Suspect]
     Active Substance: BEVACIZUMAB
     Indication: VULVAL CANCER
     Route: 065
  3. TAXOL [Concomitant]
     Active Substance: PACLITAXEL

REACTIONS (1)
  - Off label use [Unknown]
